FAERS Safety Report 5803274-5 (Version None)
Quarter: 2008Q3

REPORT INFORMATION
  Report Type: 
  Country: None (occurrence: None)
  Receive Date: 20080708
  Receipt Date: 20080702
  Transmission Date: 20090109
  Serious: Yes (Other)
  Sender: FDA-Public Use
  Company Number: A0720909A

PATIENT
  Age: 76 Year
  Sex: Female
  Weight: 40.37 kg

DRUGS (8)
  1. RYTHMOL SR [Suspect]
     Indication: ATRIAL FIBRILLATION
     Dosage: 225MG TWICE PER DAY
     Route: 048
     Dates: start: 20070923
  2. COUMADIN [Suspect]
     Indication: DRUG USE FOR UNKNOWN INDICATION
     Dates: end: 20071119
  3. COUMADIN [Suspect]
     Dosage: 3MG PER DAY
     Dates: start: 20071123
  4. NORVASC [Suspect]
     Indication: HYPERTENSION
     Dosage: 5MG PER DAY
     Route: 048
  5. ATENOLOL [Concomitant]
     Indication: DRUG USE FOR UNKNOWN INDICATION
  6. CODEINE SUL TAB [Concomitant]
     Indication: PAIN
     Dates: start: 20071001
  7. METHOTREXATE [Concomitant]
     Indication: DRUG USE FOR UNKNOWN INDICATION
     Dosage: 450MG PER DAY
  8. FOLIC ACID [Concomitant]

REACTIONS (12)
  - ALANINE AMINOTRANSFERASE INCREASED [None]
  - ASPARTATE AMINOTRANSFERASE INCREASED [None]
  - BLOOD ALKALINE PHOSPHATASE INCREASED [None]
  - BLOOD PRESSURE INCREASED [None]
  - CONSTIPATION [None]
  - COUGH [None]
  - DIZZINESS [None]
  - DRUG INTERACTION [None]
  - INCREASED UPPER AIRWAY SECRETION [None]
  - INTERNATIONAL NORMALISED RATIO INCREASED [None]
  - OEDEMA PERIPHERAL [None]
  - PELVIC FRACTURE [None]
